FAERS Safety Report 8864987 (Version 1)
Quarter: 2012Q4

REPORT INFORMATION
  Report Type: 
  Country: US (occurrence: US)
  Receive Date: 20121024
  Receipt Date: 20121024
  Transmission Date: 20130627
  Serious: No
  Sender: FDA-Public Use
  Company Number: US-AMGEN-USASP2012000388

PATIENT
  Age: 56 Year
  Sex: Female

DRUGS (2)
  1. ENBREL [Suspect]
     Indication: RHEUMATOID ARTHRITIS
     Dosage: 50 mg, 2 times/wk
     Dates: start: 20101206, end: 20110731
  2. METHOTREXATE [Concomitant]
     Dates: start: 20101201

REACTIONS (6)
  - Feeling abnormal [Unknown]
  - Malaise [Unknown]
  - Gait disturbance [Unknown]
  - Renal function test abnormal [Unknown]
  - Oral pain [Recovered/Resolved]
  - Submandibular mass [Recovered/Resolved]
